FAERS Safety Report 8525980-4 (Version None)
Quarter: 2012Q3

REPORT INFORMATION
  Report Type: 
  Country: None (occurrence: None)
  Receive Date: 20120720
  Receipt Date: 20120612
  Transmission Date: 20120928
  Serious: Yes (Other)
  Sender: FDA-Public Use
  Company Number: PHHY2012KR051766

PATIENT
  Sex: Female

DRUGS (1)
  1. SANDOSTATIN LAR [Suspect]
     Indication: ACROMEGALY
     Dosage: 30 MG/KG, UNK
     Route: 030
     Dates: start: 20090306

REACTIONS (4)
  - FEELING ABNORMAL [None]
  - FIBROMYALGIA [None]
  - POLLAKIURIA [None]
  - INSOMNIA [None]
